FAERS Safety Report 21018709 (Version 1)
Quarter: 2022Q2

REPORT INFORMATION
  Report Type: Spontaneous
  Country: IT (occurrence: IT)
  Receive Date: 20220628
  Receipt Date: 20220628
  Transmission Date: 20220721
  Serious: Yes (Other)
  Sender: FDA-Public Use
  Company Number: IT-TEVA-2022-IT-2049746

PATIENT
  Sex: Male

DRUGS (8)
  1. FLUOXETINE [Suspect]
     Active Substance: FLUOXETINE HYDROCHLORIDE
     Indication: Depression
     Dosage: MAXIMUM DOSAGE WAS 40MG [INITIAL DOSAGE NOT STATED]
     Route: 065
  2. FLUOXETINE [Suspect]
     Active Substance: FLUOXETINE HYDROCHLORIDE
     Indication: Antidepressant therapy
  3. SERTRALINE [Suspect]
     Active Substance: SERTRALINE HYDROCHLORIDE
     Indication: Depression
     Dosage: MAXIMUM DOSAGE WAS 25MG [INITIAL DOSAGE NOT STATED]
     Route: 065
  4. SERTRALINE [Suspect]
     Active Substance: SERTRALINE HYDROCHLORIDE
     Indication: Antidepressant therapy
  5. CARIPRAZINE [Suspect]
     Active Substance: CARIPRAZINE
     Indication: Bipolar I disorder
     Dosage: 1.5 MILLIGRAM DAILY; FOR THE FIRST WEEK
     Route: 048
  6. CARIPRAZINE [Suspect]
     Active Substance: CARIPRAZINE
     Dosage: 3 MILLIGRAM DAILY;
     Route: 048
  7. VALPROATE [Concomitant]
     Active Substance: VALPROIC ACID
     Indication: Bipolar I disorder
     Dosage: MAXIMUM DOSAGE WAS 500MG [INITIAL DOSAGE NOT STATED]
     Route: 065
  8. FLURAZEPAM [Concomitant]
     Active Substance: FLURAZEPAM HYDROCHLORIDE
     Indication: Insomnia
     Route: 065

REACTIONS (3)
  - Mania [Unknown]
  - Rebound effect [Recovered/Resolved]
  - Akathisia [Recovered/Resolved]
